FAERS Safety Report 11426479 (Version 1)
Quarter: 2015Q3

REPORT INFORMATION
  Report Type: Spontaneous
  Country: US (occurrence: US)
  Receive Date: 20150821
  Receipt Date: 20150821
  Transmission Date: 20151125
  Serious: No
  Sender: FDA-Public Use
  Company Number: US-ELI_LILLY_AND_COMPANY-US201010004229

PATIENT
  Age: 62 Year
  Sex: Female

DRUGS (12)
  1. HUMULIN R [Suspect]
     Active Substance: INSULIN HUMAN
     Indication: TYPE 2 DIABETES MELLITUS
     Dosage: UNK, AS NEEDED
     Dates: start: 2007, end: 201007
  2. GLYCERYL TRINITRATE [Concomitant]
     Active Substance: NITROGLYCERIN
  3. LEVOTHYROXINE SODIUM. [Concomitant]
     Active Substance: LEVOTHYROXINE SODIUM
  4. HUMULIN 70/30 [Suspect]
     Active Substance: INSULIN HUMAN
     Dosage: 50 U, EACH EVENING
     Dates: start: 201007
  5. HYDROCHLOROTHIAZIDE. [Concomitant]
     Active Substance: HYDROCHLOROTHIAZIDE
  6. ENALAPRIL [Concomitant]
     Active Substance: ENALAPRIL
  7. LORAZEPAM. [Concomitant]
     Active Substance: LORAZEPAM
  8. HUMULIN N [Suspect]
     Active Substance: INSULIN HUMAN
     Dosage: 50 U, EACH EVENING
     Dates: start: 2007, end: 201007
  9. HUMULIN 70/30 [Suspect]
     Active Substance: INSULIN HUMAN
     Indication: TYPE 2 DIABETES MELLITUS
     Dosage: 80 U, EACH MORNING
     Dates: start: 201007
  10. HUMULIN N [Suspect]
     Active Substance: INSULIN HUMAN
     Indication: TYPE 2 DIABETES MELLITUS
     Dosage: 80 U, EACH MORNING
     Dates: start: 2007, end: 201007
  11. CLOPIDOGREL SULFATE [Concomitant]
     Active Substance: CLOPIDOGREL BISULFATE
  12. METOCLOPRAMIDE HYDROCHLORIDE. [Concomitant]
     Active Substance: METOCLOPRAMIDE HYDROCHLORIDE

REACTIONS (1)
  - Amnesia [Not Recovered/Not Resolved]

NARRATIVE: CASE EVENT DATE: 201008
